FAERS Safety Report 15452597 (Version 1)
Quarter: 2018Q4

REPORT INFORMATION
  Report Type: Spontaneous
  Country: GB (occurrence: GB)
  Receive Date: 20181001
  Receipt Date: 20181001
  Transmission Date: 20190204
  Serious: Yes (Other)
  Sender: FDA-Public Use
  Company Number: GB-IMPAX LABORATORIES, INC-2018-IPXL-03135

PATIENT
  Age: 19 Year
  Sex: Male

DRUGS (1)
  1. CHLOROQUINE PHOSPHATE. [Suspect]
     Active Substance: CHLOROQUINE PHOSPHATE
     Indication: MALARIA PROPHYLAXIS
     Dosage: UNK
     Route: 065

REACTIONS (3)
  - Blindness [Unknown]
  - Generalised tonic-clonic seizure [Unknown]
  - Urticaria [Unknown]
